FAERS Safety Report 7163175-X (Version None)
Quarter: 2010Q4

REPORT INFORMATION
  Report Type: 
  Country: None (occurrence: None)
  Receive Date: 20101215
  Receipt Date: 20100310
  Transmission Date: 20110411
  Serious: Yes (Other)
  Sender: FDA-Public Use
  Company Number: US-PFIZER INC-2010033140

PATIENT
  Sex: Female

DRUGS (5)
  1. LYRICA [Suspect]
     Indication: FIBROMYALGIA
     Dosage: UNK
     Dates: start: 20100205
  2. METFORMIN HCL [Suspect]
     Dosage: 1000 MG, 2X/DAY
  3. CYMBALTA [Suspect]
     Dosage: UNK
     Dates: end: 20100205
  4. DIOVAN HCT [Suspect]
     Dosage: 116/12.5, 1X/DAY
  5. TRICOR [Suspect]
     Dosage: UNK

REACTIONS (6)
  - DIABETES MELLITUS [None]
  - DIZZINESS [None]
  - DRUG INEFFECTIVE [None]
  - HYPERTENSION [None]
  - OEDEMA [None]
  - WEIGHT INCREASED [None]
